FAERS Safety Report 6713987-9 (Version None)
Quarter: 2010Q2

REPORT INFORMATION
  Report Type: 
  Country: None (occurrence: None)
  Receive Date: 20100506
  Receipt Date: 20100423
  Transmission Date: 20101027
  Serious: Yes (Other)
  Sender: FDA-Public Use
  Company Number: US-PFIZER INC-2010052418

PATIENT
  Sex: Female
  Weight: 85.728 kg

DRUGS (6)
  1. CHANTIX [Suspect]
     Indication: SMOKING CESSATION THERAPY
     Dates: start: 20070101, end: 20070101
  2. SIMVASTATIN [Suspect]
     Indication: BLOOD CHOLESTEROL
     Dates: start: 20070101
  3. PRAVASTATIN [Suspect]
     Indication: BLOOD CHOLESTEROL
     Dates: end: 20100401
  4. VITAMIN B-12 [Concomitant]
  5. ACETYLSALICYLIC ACID [Concomitant]
  6. OMEPRAZOLE [Concomitant]

REACTIONS (10)
  - ABNORMAL DREAMS [None]
  - BLOOD CHOLESTEROL ABNORMAL [None]
  - CONDITION AGGRAVATED [None]
  - CONFUSIONAL STATE [None]
  - FATIGUE [None]
  - GAIT DISTURBANCE [None]
  - MUSCLE SPASMS [None]
  - NERVOUSNESS [None]
  - PAIN IN EXTREMITY [None]
  - TREATMENT NONCOMPLIANCE [None]
